FAERS Safety Report 7723513-3 (Version None)
Quarter: 2011Q3

REPORT INFORMATION
  Report Type: 
  Country: None (occurrence: None)
  Receive Date: 20110901
  Receipt Date: 20110824
  Transmission Date: 20111222
  Serious: Yes (Other)
  Sender: FDA-Public Use
  Company Number: BR-JNJFOC-20110811717

PATIENT
  Sex: Female
  Weight: 54 kg

DRUGS (6)
  1. LOSARTAN [Concomitant]
     Indication: RENAL FAILURE
     Route: 048
     Dates: start: 20100101
  2. REMICADE [Suspect]
     Indication: PROCTOCOLITIS
     Route: 042
     Dates: start: 20110802
  3. SPIRONOLACTONE [Concomitant]
     Indication: RENAL FAILURE
     Route: 048
     Dates: start: 20100101
  4. ALL OTHER THERAPEUTICS [Concomitant]
     Indication: CONTRACEPTION
     Route: 048
     Dates: start: 20060101
  5. HYDROCORTISONE [Concomitant]
     Indication: PREMEDICATION
     Route: 065
     Dates: start: 20110802
  6. REMICADE [Suspect]
     Route: 042
     Dates: start: 20110823

REACTIONS (3)
  - TINNITUS [None]
  - NAUSEA [None]
  - HEADACHE [None]
